FAERS Safety Report 4530240-2 (Version None)
Quarter: 2004Q4

REPORT INFORMATION
  Report Type: 
  Country: None (occurrence: None)
  Receive Date: 20041216
  Receipt Date: 20041216
  Transmission Date: 20050328
  Serious: Yes (Hospitalization)
  Sender: FDA-Public Use
  Company Number: None

PATIENT
  Age: 59 Year
  Sex: Female

DRUGS (1)
  1. GLIPIZIDE [Suspect]

REACTIONS (4)
  - ACUTE CORONARY SYNDROME [None]
  - CHEST PAIN [None]
  - HYPERTENSION [None]
  - HYPOGLYCAEMIA [None]
